FAERS Safety Report 7535877-4 (Version None)
Quarter: 2011Q2

REPORT INFORMATION
  Report Type: 
  Country: None (occurrence: None)
  Receive Date: 20110602
  Receipt Date: 20110520
  Transmission Date: 20111010
  Serious: Yes (Hospitalization)
  Sender: FDA-Public Use
  Company Number: 2011AL000039

PATIENT
  Age: 27 Year
  Sex: Male

DRUGS (1)
  1. FOLOTYN [Suspect]
     Dosage: 40 MG; QW; IV
     Route: 042
     Dates: start: 20110412, end: 20110512

REACTIONS (7)
  - STOMATITIS [None]
  - ARTERIAL RUPTURE [None]
  - FEBRILE NEUTROPENIA [None]
  - LYMPHOMA [None]
  - SPLEEN DISORDER [None]
  - BLOOD BILIRUBIN INCREASED [None]
  - NEOPLASM PROGRESSION [None]
